FAERS Safety Report 4586698-6 (Version None)
Quarter: 2005Q1

REPORT INFORMATION
  Report Type: 
  Country: None (occurrence: None)
  Receive Date: 20050218
  Receipt Date: 20041021
  Transmission Date: 20050727
  Serious: No
  Sender: FDA-Public Use
  Company Number: US-BRISTOL-MYERS SQUIBB COMPANY-12739389

PATIENT
  Age: 63 Year
  Sex: Female
  Weight: 77 kg

DRUGS (6)
  1. SUSTIVA [Suspect]
     Indication: HIV TEST POSITIVE
     Route: 048
     Dates: start: 20040101
  2. PRAVACHOL [Concomitant]
     Dosage: ^TAKEN DAILY FOR YEARS^
  3. LISINOPRIL [Concomitant]
     Dosage: ^TAKEN DAILY FOR YEARS^
  4. VIRACEPT [Concomitant]
     Dosage: ^TAKEN DAILY FOR YEARS^
  5. ZIAGEN [Concomitant]
     Dosage: ^TAKEN DAILY FOR YEARS^
  6. AMITRIPTYLINE [Concomitant]
     Indication: PAIN
     Dosage: NOT TAKEN SINCE THE ADMINISTRATION OF SUSTIVA

REACTIONS (1)
  - DIZZINESS [None]
